FAERS Safety Report 5955566-7 (Version None)
Quarter: 2008Q4

REPORT INFORMATION
  Report Type: 
  Country: None (occurrence: None)
  Receive Date: 20081117
  Receipt Date: 20081111
  Transmission Date: 20090506
  Serious: Yes (Other)
  Sender: FDA-Public Use
  Company Number: DK-PFIZER INC-2008068881

PATIENT
  Sex: Female

DRUGS (4)
  1. CHAMPIX [Suspect]
     Indication: SMOKING CESSATION THERAPY
     Route: 048
     Dates: start: 20080617, end: 20080903
  2. FLEMOXIN [Concomitant]
  3. ALL OTHER THERAPEUTIC PRODUCTS [Concomitant]
  4. ORAL CONTRACEPTIVE NOS [Concomitant]

REACTIONS (7)
  - ABDOMINAL DISTENSION [None]
  - DIZZINESS [None]
  - FATIGUE [None]
  - NAUSEA [None]
  - PETECHIAE [None]
  - SPEECH DISORDER [None]
  - VISUAL IMPAIRMENT [None]
